FAERS Safety Report 10004051 (Version 1)
Quarter: 2014Q1

REPORT INFORMATION
  Report Type: Spontaneous
  Country: US (occurrence: US)
  Receive Date: 20140312
  Receipt Date: 20140312
  Transmission Date: 20141002
  Serious: No
  Sender: FDA-Public Use
  Company Number: US-INCYTE CORPORATION-2014IN000226

PATIENT
  Sex: Male

DRUGS (7)
  1. JAKAFI [Suspect]
     Indication: MYELOPROLIFERATIVE DISORDER
     Dosage: 10 MG, BID
     Route: 048
     Dates: start: 2012, end: 201312
  2. JAKAFI [Suspect]
     Indication: MYELOFIBROSIS
     Dosage: 15 MG, BID
     Route: 048
     Dates: start: 20131215
  3. ULORIC [Concomitant]
  4. BENICAR [Concomitant]
  5. AMLODIPINE [Concomitant]
  6. OMEPRAZOLE [Concomitant]
  7. ASPIRIN [Concomitant]
     Dosage: 81 MG, UNK

REACTIONS (3)
  - Pain [Unknown]
  - Dizziness [Unknown]
  - Headache [Unknown]
